FAERS Safety Report 10802118 (Version 1)
Quarter: 2015Q1

REPORT INFORMATION
  Report Type: Spontaneous
  Country: CN (occurrence: CN)
  Receive Date: 20150217
  Receipt Date: 20150217
  Transmission Date: 20150721
  Serious: Yes (Other)
  Sender: FDA-Public Use
  Company Number: CN-JNJFOC-20150207088

PATIENT
  Sex: Female

DRUGS (3)
  1. XARELTO [Suspect]
     Active Substance: RIVAROXABAN
     Indication: THROMBOSIS PROPHYLAXIS
     Route: 048
     Dates: start: 20150203
  2. XARELTO [Suspect]
     Active Substance: RIVAROXABAN
     Indication: SACROILIAC FRACTURE
     Route: 048
     Dates: start: 20150203
  3. XARELTO [Suspect]
     Active Substance: RIVAROXABAN
     Indication: SURGERY
     Route: 048
     Dates: start: 20150203

REACTIONS (2)
  - Dizziness [Unknown]
  - Eye disorder [Unknown]

NARRATIVE: CASE EVENT DATE: 20150204
